FAERS Safety Report 10149412 (Version 3)
Quarter: 2014Q2

REPORT INFORMATION
  Report Type: Spontaneous
  Country: IN (occurrence: None)
  Receive Date: 20140430
  Receipt Date: 20140520
  Transmission Date: 20141212
  Serious: Yes (Hospitalization, Other)
  Sender: FDA-Public Use
  Company Number: AUR-APL-2014-05072

PATIENT
  Age: 41 Year
  Sex: Male

DRUGS (5)
  1. EFAVIRENZ (EFAVIRENZ) [Suspect]
     Indication: ANTIRETROVIRAL THERAPY
  2. LAMIVUDINE [Suspect]
     Indication: ANTIRETROVIRAL THERAPY
     Dates: start: 200906
  3. NEVIRAPINE [Suspect]
     Indication: ANTIRETROVIRAL THERAPY
     Dates: start: 200906
  4. STAVUDINE [Suspect]
     Indication: ANTIRETROVIRAL THERAPY
  5. ZIDOVUDINE [Suspect]
     Indication: ANTIRETROVIRAL THERAPY
     Dates: start: 200906

REACTIONS (5)
  - Immune reconstitution inflammatory syndrome [None]
  - Meningitis tuberculous [None]
  - Brain abscess [None]
  - Mycobacterium tuberculosis complex test positive [None]
  - Anaemia [None]
